FAERS Safety Report 24747140 (Version 1)
Quarter: 2024Q4

REPORT INFORMATION
  Report Type: Spontaneous
  Country: SG (occurrence: SG)
  Receive Date: 20241218
  Receipt Date: 20241218
  Transmission Date: 20250115
  Serious: Yes (Other)
  Sender: AMGEN
  Company Number: SG-AMGEN-SGPSP2024243215

PATIENT
  Age: 30 Year
  Sex: Male

DRUGS (3)
  1. FILGRASTIM [Suspect]
     Active Substance: FILGRASTIM
     Indication: Neutropenia
     Dosage: 300 MICROGRAM
     Route: 058
  2. CLENBUTEROL [Suspect]
     Active Substance: CLENBUTEROL
     Indication: Product used for unknown indication
     Dosage: 40 MILLIGRAM
     Route: 065
  3. 2,4-DINITROPHENOL [Suspect]
     Active Substance: 2,4-DINITROPHENOL
     Indication: Product used for unknown indication
     Dosage: 50 MILLIGRAM, QD
     Route: 065

REACTIONS (3)
  - Myocardial injury [Unknown]
  - Septic cardiomyopathy [Unknown]
  - Parotitis [Unknown]
